FAERS Safety Report 5330043-5 (Version None)
Quarter: 2007Q2

REPORT INFORMATION
  Report Type: 
  Country: None (occurrence: None)
  Receive Date: 20070521
  Receipt Date: 20070509
  Transmission Date: 20071010
  Serious: Yes (Other)
  Sender: FDA-Public Use
  Company Number: BR-ELI_LILLY_AND_COMPANY-BR200705003709

PATIENT
  Age: 32 Year
  Sex: Male

DRUGS (3)
  1. OLANZAPINE [Suspect]
     Indication: SCHIZOPHRENIA, PARANOID TYPE
     Dosage: 10 MG, DAILY (1/D)
  2. OLANZAPINE [Suspect]
     Dosage: 30 MG, DAILY (1/D)
  3. CLOZAPINE [Concomitant]
     Dosage: 220 MG, DAILY (1/D)

REACTIONS (2)
  - NEUTROPENIA [None]
  - PRESCRIBED OVERDOSE [None]
